FAERS Safety Report 7400714-5 (Version None)
Quarter: 2011Q2

REPORT INFORMATION
  Report Type: 
  Country: None (occurrence: None)
  Receive Date: 20110407
  Receipt Date: 20101220
  Transmission Date: 20111010
  Serious: Yes (Hospitalization)
  Sender: FDA-Public Use
  Company Number: A0903041A

PATIENT
  Sex: Female

DRUGS (1)
  1. AVANDAMET [Suspect]
     Indication: DIABETES MELLITUS
     Route: 048
     Dates: start: 20030901, end: 20100301

REACTIONS (6)
  - FEAR [None]
  - ECONOMIC PROBLEM [None]
  - ANHEDONIA [None]
  - EMOTIONAL DISTRESS [None]
  - CARDIOVASCULAR DISORDER [None]
  - PAIN [None]
